FAERS Safety Report 5296700-4 (Version None)
Quarter: 2007Q2

REPORT INFORMATION
  Report Type: 
  Country: None (occurrence: None)
  Receive Date: 20070413
  Receipt Date: 20070402
  Transmission Date: 20071010
  Serious: Yes (Hospitalization, Other)
  Sender: FDA-Public Use
  Company Number: JP-PFIZER INC-2007021321

PATIENT
  Sex: Male

DRUGS (8)
  1. SOLU-MEDROL [Suspect]
     Route: 042
     Dates: start: 20050101, end: 20070201
  2. PREDONINE [Concomitant]
     Route: 048
  3. CLARITHROMYCIN [Concomitant]
     Route: 048
     Dates: start: 20070224
  4. VALSARTAN [Concomitant]
     Route: 048
  5. HALOPERIDOL [Concomitant]
  6. OMEPRAL [Concomitant]
  7. SULFASALAZINE [Concomitant]
     Route: 048
  8. GLYBURIDE [Concomitant]
     Route: 048

REACTIONS (2)
  - BLOOD AMYLASE INCREASED [None]
  - RESPIRATORY TRACT INFECTION [None]
